FAERS Safety Report 7447954-7 (Version None)
Quarter: 2011Q2

REPORT INFORMATION
  Report Type: 
  Country: None (occurrence: None)
  Receive Date: 20110429
  Receipt Date: 20110420
  Transmission Date: 20111010
  Serious: Yes (Hospitalization)
  Sender: FDA-Public Use
  Company Number: BE-ABBOTT-11P-013-0720889-00

PATIENT
  Sex: Female
  Weight: 52 kg

DRUGS (17)
  1. HUMIRA [Suspect]
     Dosage: WEEK 2
     Route: 058
  2. ORGAMETRIL [Concomitant]
     Indication: CONTRACEPTION
     Dates: start: 20100101
  3. ENTOCORT EC [Concomitant]
     Indication: CROHN'S DISEASE
     Dates: start: 20100601
  4. CELEBREX [Concomitant]
     Indication: ARTHRALGIA
     Dates: start: 20100601
  5. TRAMIUM [Concomitant]
     Indication: PAIN
     Dates: start: 20100801
  6. ALPRAZOLAM [Concomitant]
     Indication: INSOMNIA
     Dates: start: 20090301
  7. CHLORZOXAZONE W/ APAP [Concomitant]
     Indication: PAIN
     Dosage: 250MG/400MG
  8. ZOLPIDEM TARTRATE [Concomitant]
     Indication: INSOMNIA
     Dates: start: 20101101
  9. TRAMADOL [Concomitant]
     Indication: PAIN
     Dates: start: 20101020
  10. HUMIRA [Suspect]
     Route: 058
     Dates: end: 20101011
  11. DIPROSPAN [Concomitant]
     Indication: ARTHRALGIA
     Dates: start: 20100101
  12. VOLTAREN [Concomitant]
     Indication: ARTHRALGIA
     Dates: start: 20100301
  13. ZALDIAR [Concomitant]
     Indication: ARTHRALGIA
     Dosage: 37.5/325 MG
     Dates: start: 20100414
  14. HUMIRA [Suspect]
     Indication: CROHN'S DISEASE
     Dosage: ONCE
     Route: 058
     Dates: start: 20080827, end: 20080827
  15. COMMERCIAL HUMIRA [Concomitant]
     Indication: PRODUCT USED FOR UNKNOWN INDICATION
     Dates: start: 20080813
  16. DAFALGAN [Concomitant]
     Indication: PAIN
     Dates: start: 20100101
  17. DEPO-MEDROL [Concomitant]
     Indication: ARTHRALGIA
     Dosage: 40MG/1ML
     Dates: start: 20101026, end: 20101026

REACTIONS (1)
  - ARTHRALGIA [None]
